FAERS Safety Report 6293823-8 (Version None)
Quarter: 2009Q3

REPORT INFORMATION
  Report Type: 
  Country: None (occurrence: None)
  Receive Date: 20090731
  Receipt Date: 20090731
  Transmission Date: 20100115
  Serious: Yes (Hospitalization, Other)
  Sender: FDA-Public Use
  Company Number: None

PATIENT
  Sex: Female
  Weight: 90.7194 kg

DRUGS (2)
  1. ABILIFY [Suspect]
     Dosage: 5MG, QD, PO; ONLY ABILIFY GIVEN AT TWO SEPARATE TIMES
     Route: 048
     Dates: start: 20060621, end: 20080213
  2. ABILIFY [Suspect]
     Dosage: ABILIFY 5 MG, QD, PO, ONLY ABILIFY-GIVEN AT TWO SEPARATE TIMES
     Route: 048
     Dates: start: 20081128, end: 20090201

REACTIONS (1)
  - DIABETES MELLITUS [None]
